FAERS Safety Report 7058655-1 (Version None)
Quarter: 2010Q4

REPORT INFORMATION
  Report Type: 
  Country: None (occurrence: None)
  Receive Date: 20101022
  Receipt Date: 20101007
  Transmission Date: 20110411
  Serious: Yes (Other)
  Sender: FDA-Public Use
  Company Number: PHHY2010US67022

PATIENT
  Sex: Female

DRUGS (8)
  1. RECLAST [Suspect]
     Dosage: 5 MG
     Route: 042
     Dates: start: 20100101
  2. LESCOL [Concomitant]
  3. DIOVAN [Concomitant]
  4. INSULIN [Concomitant]
  5. ASCORBIC ACID [Concomitant]
  6. CENTRUM SILVER [Concomitant]
  7. OMEPRAZOLE [Concomitant]
  8. PRODASONE [Concomitant]

REACTIONS (8)
  - BONE PAIN [None]
  - FEELING ABNORMAL [None]
  - MALAISE [None]
  - MYALGIA [None]
  - NAUSEA [None]
  - PAIN [None]
  - RHEUMATOID ARTHRITIS [None]
  - VOMITING [None]
